FAERS Safety Report 6960161-7 (Version None)
Quarter: 2010Q3

REPORT INFORMATION
  Report Type: 
  Country: None (occurrence: None)
  Receive Date: 20100901
  Receipt Date: 20100823
  Transmission Date: 20110219
  Serious: Yes (Other)
  Sender: FDA-Public Use
  Company Number: AU-ASTRAZENECA-2010SE36586

PATIENT
  Age: 69 Year
  Sex: Male
  Weight: 95.3 kg

DRUGS (12)
  1. TENORMIN [Suspect]
     Indication: HYPERTENSION
     Route: 048
     Dates: start: 19850101
  2. TENORMIN [Suspect]
     Indication: PALPITATIONS
     Route: 048
     Dates: start: 19850101
  3. TENORMIN [Suspect]
     Dosage: ONE TABLET AT 06:30 AM AND ANOTHER AT 4:30 PM
     Route: 048
     Dates: start: 20060101
  4. TENORMIN [Suspect]
     Dosage: ONE TABLET AT 06:30 AM AND ANOTHER AT 4:30 PM
     Route: 048
     Dates: start: 20060101
  5. TENORMIN [Suspect]
     Route: 048
     Dates: start: 20100704, end: 20100708
  6. TENORMIN [Suspect]
     Route: 048
     Dates: start: 20100704, end: 20100708
  7. ASPIRIN [Concomitant]
  8. SIMVASTATIN [Concomitant]
     Indication: HYPERCHOLESTEROLAEMIA
     Route: 048
     Dates: start: 20060101
  9. RAMIPRIL [Concomitant]
     Route: 048
  10. IKOREL [Concomitant]
     Indication: ANGINA PECTORIS
     Route: 048
     Dates: start: 20060101
  11. NORVASC [Concomitant]
     Indication: BLOOD PRESSURE
     Route: 048
     Dates: start: 20000101
  12. TRITACE [Concomitant]
     Indication: BLOOD PRESSURE
     Route: 048
     Dates: start: 20060101

REACTIONS (3)
  - DRUG INEFFECTIVE [None]
  - HEART RATE INCREASED [None]
  - MYOCARDIAL INFARCTION [None]
